FAERS Safety Report 8846785 (Version 1)
Quarter: 2012Q4

REPORT INFORMATION
  Report Type: 
  Country: US (occurrence: US)
  Receive Date: 20121018
  Receipt Date: 20121018
  Transmission Date: 20130627
  Serious: Yes (Other)
  Sender: FDA-Public Use
  Company Number: US-PFIZER INC-HQWYE226303NOV04

PATIENT
  Age: 57 Year
  Sex: Female
  Weight: 86 kg

DRUGS (10)
  1. PROVERA [Suspect]
     Indication: HORMONE REPLACEMENT THERAPY
     Dosage: UNK
     Route: 048
     Dates: start: 1990, end: 1997
  2. PROVERA [Suspect]
     Indication: MENOPAUSAL SYMPTOMS
  3. PREMARIN [Suspect]
     Indication: HORMONE REPLACEMENT THERAPY
     Dosage: UNK
     Route: 048
     Dates: start: 1990, end: 200011
  4. PREMARIN [Suspect]
     Indication: MENOPAUSAL SYMPTOMS
  5. MEDROXYPROGESTERONE ACETATE [Suspect]
     Indication: HORMONE REPLACEMENT THERAPY
     Dosage: UNK
     Dates: start: 1990, end: 2000
  6. MEDROXYPROGESTERONE ACETATE [Suspect]
     Indication: MENOPAUSAL SYMPTOMS
  7. MEDROXYPROGESTERONE [Suspect]
     Indication: HORMONE REPLACEMENT THERAPY
     Dosage: UNK
     Dates: start: 1990, end: 2000
  8. PENEDIL [Concomitant]
     Indication: HYPERTENSION
     Dosage: UNK
     Dates: start: 19920924
  9. AMILORIDE [Concomitant]
     Indication: HYPERTENSION
     Dosage: UNK
     Dates: start: 19951213
  10. LEVOXYL [Concomitant]
     Dosage: UNK
     Dates: start: 19981023

REACTIONS (1)
  - Invasive lobular breast carcinoma [Unknown]
